FAERS Safety Report 5015569-6 (Version None)
Quarter: 2006Q2

REPORT INFORMATION
  Report Type: 
  Country: None (occurrence: None)
  Receive Date: 20060601
  Receipt Date: 20060515
  Transmission Date: 20061013
  Serious: Yes (Hospitalization)
  Sender: FDA-Public Use
  Company Number: JP-AVENTIS-200611509JP

PATIENT
  Age: 42 Year
  Sex: Male

DRUGS (5)
  1. AMARYL [Suspect]
     Indication: DIABETES MELLITUS
     Route: 048
     Dates: start: 20050401
  2. AMARYL [Suspect]
     Route: 048
     Dates: start: 20050801
  3. AMARYL [Suspect]
     Route: 048
     Dates: start: 20051201
  4. AMARYL [Suspect]
     Route: 048
     Dates: start: 20060201
  5. AMARYL [Suspect]
     Route: 048
     Dates: start: 20060301

REACTIONS (2)
  - DIABETIC RETINOPATHY [None]
  - GLAUCOMA [None]
